FAERS Safety Report 19248396 (Version 2)
Quarter: 2021Q2

REPORT INFORMATION
  Report Type: Spontaneous
  Country: FR (occurrence: FR)
  Receive Date: 20210512
  Receipt Date: 20210629
  Transmission Date: 20210717
  Serious: Yes (Hospitalization, Other)
  Sender: FDA-Public Use
  Company Number: FR-AMERICAN REGENT INC-2021001185

PATIENT
  Sex: Male
  Weight: 3.03 kg

DRUGS (11)
  1. VENOFER [Suspect]
     Active Substance: IRON SUCROSE
     Indication: PRODUCT USED FOR UNKNOWN INDICATION
     Dosage: UNK, GESTATION WEEK 11
     Route: 064
  2. VENOFER [Suspect]
     Active Substance: IRON SUCROSE
     Dosage: UNK, GESTATION WEEK 34
     Route: 064
  3. CLAIRYG [Suspect]
     Active Substance: HUMAN IMMUNOGLOBULIN G
     Indication: PRODUCT USED FOR UNKNOWN INDICATION
     Dosage: 1 GRAM PER KILOGRAM, QW FROM 6 WEEKS GESTATION
     Route: 064
  4. ARANESP [Suspect]
     Active Substance: DARBEPOETIN ALFA
     Indication: PRODUCT USED FOR UNKNOWN INDICATION
     Dosage: 20 MICROGRAM, QW FROM 11 WEEKS GESTATION
     Route: 064
  5. CLAIRYG [Suspect]
     Active Substance: HUMAN IMMUNOGLOBULIN G
     Dosage: 2 GRAM PER KILOGRAM, QW FROM GESTATION WEEK 11?34
     Route: 064
  6. PRIVIGEN [Suspect]
     Active Substance: HUMAN IMMUNOGLOBULIN G
     Indication: PRODUCT USED FOR UNKNOWN INDICATION
     Dosage: 1.5 GRAM PER KILOGRAM, QW FROM GESTATIONAL WEEKS 7 ? 10
     Route: 064
  7. VITAMIN B9 [Suspect]
     Active Substance: FOLIC ACID
     Indication: PRODUCT USED FOR UNKNOWN INDICATION
     Dosage: 5 MILLIGRAM, QD FROM 11 WEEKS GESTATION
     Route: 064
  8. ARANESP [Suspect]
     Active Substance: DARBEPOETIN ALFA
     Dosage: PROGESSIVE INCREASE TO 160 MICROGRAM PER WEEK AT 36 WEEKS
     Route: 064
  9. ASPIRIN (E.C.) [Suspect]
     Active Substance: ASPIRIN
     Indication: PRODUCT USED FOR UNKNOWN INDICATION
     Dosage: 100 MILLIGRAM, QD
     Route: 064
  10. FERINJECT [Suspect]
     Active Substance: FERRIC CARBOXYMALTOSE
     Dosage: UNK, GESTATION WEEK 34
     Route: 064
  11. FERINJECT [Suspect]
     Active Substance: FERRIC CARBOXYMALTOSE
     Indication: PRODUCT USED FOR UNKNOWN INDICATION
     Dosage: UNK, GESTATION WEEK 11
     Route: 064

REACTIONS (4)
  - Hyperbilirubinaemia neonatal [Unknown]
  - Foetal exposure during pregnancy [Recovered/Resolved]
  - Neonatal respiratory distress [Recovered/Resolved]
  - Haemoglobin decreased [Unknown]
